FAERS Safety Report 17494197 (Version 1)
Quarter: 2020Q1

REPORT INFORMATION
  Report Type: Spontaneous
  Country: US (occurrence: US)
  Receive Date: 20200304
  Receipt Date: 20200304
  Transmission Date: 20200409
  Serious: Yes (Hospitalization)
  Sender: FDA-Public Use
  Company Number: US-ELI_LILLY_AND_COMPANY-US202002011270

PATIENT
  Sex: Female

DRUGS (1)
  1. GALCANEZUMAB 120MG [Suspect]
     Active Substance: GALCANEZUMAB
     Indication: PRODUCT USED FOR UNKNOWN INDICATION
     Dosage: 1 DOSAGE FORM, UNKNOWN
     Route: 058
     Dates: start: 2019

REACTIONS (4)
  - Injection site haemorrhage [Unknown]
  - Migraine [Unknown]
  - Intestinal obstruction [Unknown]
  - Headache [Unknown]
